FAERS Safety Report 16963984 (Version 1)
Quarter: 2019Q4

REPORT INFORMATION
  Report Type: Spontaneous
  Country: FR (occurrence: FR)
  Receive Date: 20191026
  Receipt Date: 20191026
  Transmission Date: 20200122
  Serious: Yes (Hospitalization)
  Sender: FDA-Public Use
  Company Number: FR-ACCORD-159170

PATIENT
  Age: 68 Year
  Sex: Female
  Weight: 73.8 kg

DRUGS (2)
  1. CISPLATIN ACCORD [Suspect]
     Active Substance: CISPLATIN
     Indication: LUNG SQUAMOUS CELL CARCINOMA STAGE IV
     Dosage: STRENGTH : 1 MG/ML
     Route: 042
     Dates: start: 20190910
  2. NAVELBINE [Suspect]
     Active Substance: VINORELBINE TARTRATE
     Indication: LUNG SQUAMOUS CELL CARCINOMA STAGE IV
     Dosage: STRENGTH :  50 MG / 5 ML,  IN A VIAL
     Route: 042
     Dates: start: 20190910

REACTIONS (2)
  - Pyrexia [Recovered/Resolved]
  - Bicytopenia [Recovering/Resolving]

NARRATIVE: CASE EVENT DATE: 20190923
